FAERS Safety Report 23207820 (Version 1)
Quarter: 2023Q4

REPORT INFORMATION
  Report Type: Spontaneous
  Country: US (occurrence: US)
  Receive Date: 20231121
  Receipt Date: 20231121
  Transmission Date: 20240110
  Serious: No
  Sender: FDA-Public Use
  Company Number: US-drreddys-SPO/USA/23/0181983

PATIENT
  Age: 61 Year
  Sex: Female

DRUGS (10)
  1. LETROZOLE [Suspect]
     Active Substance: LETROZOLE
     Indication: Hormone receptor positive breast cancer
     Route: 048
     Dates: start: 201911, end: 202010
  2. NICOTINE [Concomitant]
     Active Substance: NICOTINE
     Indication: Smoking cessation therapy
     Dosage: 1 PATCH APPLIED TOPICALLY DAILY
     Route: 061
  3. FLUTICASONE, SALMETEROL [Concomitant]
     Indication: Chronic obstructive pulmonary disease
     Dosage: 1 INHALATION ORALLY TWICE DAILY
     Route: 048
  4. LISINOPRIL [Concomitant]
     Active Substance: LISINOPRIL
     Indication: Hypertension
  5. IPRATROPIUM,  ALBUTEROL [Concomitant]
     Indication: Chronic obstructive pulmonary disease
     Dosage: 1 NEBULIZED AMPULE INHALED ORALLY EVERY 6 H AS NEEDED
     Route: 048
  6. ALBUTEROL [Concomitant]
     Active Substance: ALBUTEROL
     Indication: Chronic obstructive pulmonary disease
     Dosage: 1 PUFF INHALED EVERY 4?6 H AS  NEEDED
     Route: 055
  7. ALBUTEROL [Concomitant]
     Active Substance: ALBUTEROL
     Dosage: 1 PUFF INHALED EVERY 4?6 H AS  NEEDED
     Route: 055
  8. TIOTROPIUM [Concomitant]
     Active Substance: TIOTROPIUM
     Indication: Chronic obstructive pulmonary disease
     Dosage: 2 INHALATIONS ORALLY ONCE DAILY
     Route: 048
  9. EXEMESTANE [Concomitant]
     Active Substance: EXEMESTANE
     Indication: Breast cancer
     Route: 048
  10. PAROXETINE [Concomitant]
     Active Substance: PAROXETINE
     Indication: Hot flush
     Dosage: STRENGTH: 7.5 MG
     Route: 048

REACTIONS (1)
  - Autonomic nervous system imbalance [Unknown]

NARRATIVE: CASE EVENT DATE: 20200101
